FAERS Safety Report 5150797-0 (Version None)
Quarter: 2006Q4

REPORT INFORMATION
  Report Type: 
  Country: None (occurrence: None)
  Receive Date: 20061108
  Receipt Date: 20061023
  Transmission Date: 20070319
  Serious: Yes (Hospitalization)
  Sender: FDA-Public Use
  Company Number: 229521

PATIENT
  Age: 55 Year
  Sex: Male

DRUGS (3)
  1. AVASTIN [Suspect]
     Indication: COLORECTAL CANCER
     Dosage: 7.5 MG/KG, Q3W, INTRAVENOUS
     Route: 042
     Dates: start: 20060124, end: 20060523
  2. CAPECITABINE (CAPECITABINE) [Suspect]
     Indication: COLORECTAL CANCER
     Dosage: 1800 MG/M2, D1 4/Q3W, ORAL
     Route: 048
     Dates: start: 20060124
  3. IRINOTECAN HCL [Suspect]
     Indication: COLORECTAL CANCER
     Dosage: 200 MG/M2, Q3W, INTRAVENOUS
     Route: 042
     Dates: start: 20060124, end: 20060821

REACTIONS (4)
  - BILE DUCT CANCER [None]
  - BILE DUCT STENOSIS [None]
  - CHOLESTASIS [None]
  - METASTASIS [None]
